FAERS Safety Report 14110025 (Version 1)
Quarter: 2017Q4

REPORT INFORMATION
  Report Type: Spontaneous
  Country: US (occurrence: US)
  Receive Date: 20171020
  Receipt Date: 20171020
  Transmission Date: 20180321
  Serious: Yes (Hospitalization, Other)
  Sender: FDA-Public Use
  Company Number: US-TEVA-772359USA

PATIENT
  Age: 18 Year
  Sex: Female

DRUGS (1)
  1. SPRINTEC [Suspect]
     Active Substance: ETHINYL ESTRADIOL\NORGESTIMATE
     Indication: POLYMENORRHOEA
     Dosage: 0.250 MG/0.035 MG
     Route: 048
     Dates: start: 201702, end: 201705

REACTIONS (4)
  - Pulmonary embolism [Recovered/Resolved with Sequelae]
  - Dyspnoea [Unknown]
  - Chest pain [Unknown]
  - Thrombophlebitis superficial [Unknown]

NARRATIVE: CASE EVENT DATE: 20170518
